FAERS Safety Report 18277896 (Version 2)
Quarter: 2022Q4

REPORT INFORMATION
  Report Type: Spontaneous
  Country: US (occurrence: US)
  Receive Date: 20200917
  Receipt Date: 20221117
  Transmission Date: 20230113
  Serious: No
  Sender: FDA-Public Use
  Company Number: US-SA-2020SA252501

PATIENT
  Age: 69 Year
  Sex: Female

DRUGS (2)
  1. DUPIXENT [Suspect]
     Active Substance: DUPILUMAB
     Indication: Dermatitis atopic
     Dosage: UNK
     Route: 058
     Dates: start: 20200901, end: 20200915
  2. DUPIXENT [Suspect]
     Active Substance: DUPILUMAB
     Dosage: 300 MG, QOW
     Route: 058
     Dates: start: 20221018

REACTIONS (8)
  - Vision blurred [Not Recovered/Not Resolved]
  - Vision blurred [Unknown]
  - Eye pruritus [Unknown]
  - Injection site pain [Unknown]
  - Dry throat [Unknown]
  - Injection site swelling [Recovered/Resolved]
  - Nerve compression [Unknown]
  - Gait disturbance [Unknown]

NARRATIVE: CASE EVENT DATE: 20200908
